FAERS Safety Report 8422654-5 (Version None)
Quarter: 2012Q2

REPORT INFORMATION
  Report Type: 
  Country: None (occurrence: None)
  Receive Date: 20120608
  Receipt Date: 20120529
  Transmission Date: 20120825
  Serious: Yes (Hospitalization, Other)
  Sender: FDA-Public Use
  Company Number: ES-ROCHE-GNE241988

PATIENT
  Sex: Male
  Weight: 78.8 kg

DRUGS (3)
  1. RANIBIZUMAB [Suspect]
     Indication: MACULAR DEGENERATION
     Route: 050
     Dates: start: 20070125
  2. ASPIRIN [Concomitant]
     Indication: PRODUCT USED FOR UNKNOWN INDICATION
  3. DIGOXIN [Concomitant]
     Indication: PRODUCT USED FOR UNKNOWN INDICATION

REACTIONS (5)
  - CONCOMITANT DISEASE PROGRESSION [None]
  - HYPERTENSION [None]
  - ATRIAL FIBRILLATION [None]
  - DYSLIPIDAEMIA [None]
  - MYOCARDIAL INFARCTION [None]
